FAERS Safety Report 18323524 (Version 1)
Quarter: 2020Q3

REPORT INFORMATION
  Report Type: Spontaneous
  Country: US (occurrence: US)
  Receive Date: 20200928
  Receipt Date: 20200928
  Transmission Date: 20201103
  Serious: Yes (Other)
  Sender: FDA-Public Use
  Company Number: US-JNJFOC-20200932455

PATIENT
  Age: 5 Decade
  Sex: Female
  Weight: 108.05 kg

DRUGS (2)
  1. STELARA [Suspect]
     Active Substance: USTEKINUMAB
  2. STELARA [Suspect]
     Active Substance: USTEKINUMAB
     Indication: PSORIASIS
     Route: 058

REACTIONS (12)
  - Cough [Unknown]
  - Tooth infection [Unknown]
  - Diabetes mellitus [Unknown]
  - Pruritus [Unknown]
  - Inappropriate schedule of product administration [Unknown]
  - Off label use [Unknown]
  - Dyspnoea [Unknown]
  - Localised infection [Unknown]
  - Blindness [Unknown]
  - Blood glucose decreased [Unknown]
  - Eye haemorrhage [Unknown]
  - Vision blurred [Unknown]

NARRATIVE: CASE EVENT DATE: 2019
